FAERS Safety Report 6333869-4 (Version None)
Quarter: 2009Q3

REPORT INFORMATION
  Report Type: 
  Country: None (occurrence: None)
  Receive Date: 20090829
  Receipt Date: 20090618
  Transmission Date: 20100115
  Serious: No
  Sender: FDA-Public Use
  Company Number: US-ABBOTT-09P-163-0581035-00

PATIENT
  Sex: Male
  Weight: 68.1 kg

DRUGS (1)
  1. SIMCOR [Suspect]
     Indication: HIGH DENSITY LIPOPROTEIN DECREASED
     Dosage: 500/20 MG
     Route: 048

REACTIONS (1)
  - LABORATORY TEST ABNORMAL [None]
